FAERS Safety Report 8094526-X (Version None)
Quarter: 2012Q1

REPORT INFORMATION
  Report Type: 
  Country: None (occurrence: None)
  Receive Date: 20120131
  Receipt Date: 20120130
  Transmission Date: 20120608
  Serious: Yes (Death, Congenital Anomaly)
  Sender: FDA-Public Use
  Company Number: DK-JNJFOC-20070305624

PATIENT

DRUGS (1)
  1. RISPERDAL [Suspect]
     Indication: FOETAL EXPOSURE DURING PREGNANCY
     Route: 064
     Dates: end: 20061201

REACTIONS (1)
  - CLEFT LIP AND PALATE [None]
